FAERS Safety Report 14764172 (Version 1)
Quarter: 2018Q2

REPORT INFORMATION
  Report Type: Spontaneous
  Country: US (occurrence: US)
  Receive Date: 20180416
  Receipt Date: 20180416
  Transmission Date: 20180711
  Serious: No
  Sender: FDA-Public Use
  Company Number: US-BAYER-2018-072872

PATIENT
  Sex: Female

DRUGS (15)
  1. CARVEDILOL. [Concomitant]
     Active Substance: CARVEDILOL
  2. MECLIZINE HCL [Concomitant]
     Active Substance: MECLIZINE HYDROCHLORIDE
  3. DULOXETINE. [Concomitant]
     Active Substance: DULOXETINE
  4. BAYER LOW DOSE [Concomitant]
     Active Substance: ASPIRIN
  5. HYDROCODONE/ACETAMINOPHEN [Concomitant]
     Active Substance: ACETAMINOPHEN\HYDROCODONE
  6. CALTRATE [Concomitant]
     Active Substance: CALCIUM CARBONATE
  7. VITAMIN D3 [Concomitant]
     Active Substance: CHOLECALCIFEROL
  8. LEVOTHYROXINE SODIUM. [Concomitant]
     Active Substance: LEVOTHYROXINE SODIUM
  9. BETASERON [Suspect]
     Active Substance: INTERFERON BETA-1B
     Dosage: 0.25 MG, QOD
     Route: 058
     Dates: start: 201009
  10. METHYLPHENIDATE. [Concomitant]
     Active Substance: METHYLPHENIDATE
  11. GABAPENTIN. [Concomitant]
     Active Substance: GABAPENTIN
  12. CENTRUM [Concomitant]
     Active Substance: VITAMINS
  13. PROAIR HFA [Concomitant]
     Active Substance: ALBUTEROL SULFATE
  14. PAXIL [Concomitant]
     Active Substance: PAROXETINE HYDROCHLORIDE
  15. DIAZEPAM. [Concomitant]
     Active Substance: DIAZEPAM

REACTIONS (1)
  - Contusion [Not Recovered/Not Resolved]
